FAERS Safety Report 18404733 (Version 1)
Quarter: 2020Q4

REPORT INFORMATION
  Report Type: Spontaneous
  Country: US (occurrence: US)
  Receive Date: 20201020
  Receipt Date: 20201020
  Transmission Date: 20210114
  Serious: Yes (Hospitalization)
  Sender: FDA-Public Use
  Company Number: None

PATIENT
  Age: 66 Year
  Sex: Female
  Weight: 58.05 kg

DRUGS (3)
  1. METFORMIN [Concomitant]
     Active Substance: METFORMIN HYDROCHLORIDE
     Dates: start: 20200804, end: 20201016
  2. INSULIN SLIDING SCALE [Concomitant]
     Dates: start: 20201001
  3. PIQRAY [Suspect]
     Active Substance: ALPELISIB
     Indication: BREAST CANCER
     Dates: start: 20200804, end: 20201016

REACTIONS (6)
  - Blood creatinine increased [None]
  - Adrenal disorder [None]
  - Inflammation [None]
  - Anaemia [None]
  - Hyperferritinaemia [None]
  - Bone marrow disorder [None]

NARRATIVE: CASE EVENT DATE: 20201015
